FAERS Safety Report 15851126 (Version 1)
Quarter: 2019Q1

REPORT INFORMATION
  Report Type: Spontaneous
  Country: SE (occurrence: SE)
  Receive Date: 20190122
  Receipt Date: 20190122
  Transmission Date: 20190417
  Serious: Yes (Hospitalization)
  Sender: FDA-Public Use
  Company Number: SE-TEVA-2019-SE-1001181

PATIENT
  Age: 50 Year
  Sex: Male

DRUGS (1)
  1. ARSENIKTRIOXID [Suspect]
     Active Substance: ARSENIC TRIOXIDE
     Route: 065

REACTIONS (1)
  - Pericarditis [Recovering/Resolving]

NARRATIVE: CASE EVENT DATE: 201811
